FAERS Safety Report 16228782 (Version 1)
Quarter: 2019Q2

REPORT INFORMATION
  Report Type: Spontaneous
  Country: US (occurrence: US)
  Receive Date: 20190423
  Receipt Date: 20190423
  Transmission Date: 20190711
  Serious: No
  Sender: FDA-Public Use
  Company Number: US-TEVA-2018-US-926527

PATIENT
  Age: 64 Year
  Sex: Female

DRUGS (3)
  1. PENICILLAMINE [Concomitant]
     Active Substance: PENICILLAMINE
     Indication: SCLERODERMA
  2. LEVOTHYROXINE. [Concomitant]
     Active Substance: LEVOTHYROXINE
     Indication: HYPOTHYROIDISM
  3. MINOCYCLINE [Suspect]
     Active Substance: MINOCYCLINE\MINOCYCLINE HYDROCHLORIDE
     Indication: SCLERODERMA

REACTIONS (4)
  - Scleral discolouration [Not Recovered/Not Resolved]
  - Gingival hyperpigmentation [Not Recovered/Not Resolved]
  - Skin hyperpigmentation [Not Recovered/Not Resolved]
  - Tooth discolouration [Not Recovered/Not Resolved]
